FAERS Safety Report 7423934-2 (Version None)
Quarter: 2011Q2

REPORT INFORMATION
  Report Type: 
  Country: None (occurrence: None)
  Receive Date: 20110419
  Receipt Date: 20110412
  Transmission Date: 20111010
  Serious: Yes (Hospitalization)
  Sender: FDA-Public Use
  Company Number: A0903056A

PATIENT
  Age: 67 Year
  Sex: Female

DRUGS (4)
  1. BENICAR [Concomitant]
  2. ADVAIR HFA [Concomitant]
  3. AVANDIA [Suspect]
     Indication: DIABETES MELLITUS
     Dosage: 8MG PER DAY
     Route: 048
     Dates: start: 20021028, end: 20090418
  4. PROVENTIL [Concomitant]

REACTIONS (3)
  - LEFT VENTRICULAR DYSFUNCTION [None]
  - CORONARY ARTERY DISEASE [None]
  - ACUTE MYOCARDIAL INFARCTION [None]
